FAERS Safety Report 5797128-0 (Version None)
Quarter: 2008Q3

REPORT INFORMATION
  Report Type: 
  Country: None (occurrence: None)
  Receive Date: 20080701
  Receipt Date: 20080620
  Transmission Date: 20090109
  Serious: Yes (Other)
  Sender: FDA-Public Use
  Company Number: PHNU2008DE00852

PATIENT
  Sex: Male

DRUGS (5)
  1. LAMISIL [Suspect]
     Dosage: 250 MG/DAY
     Route: 048
     Dates: start: 20080120, end: 20080210
  2. LORZAAR [Concomitant]
  3. CARMEN [Concomitant]
  4. PLAVIX [Concomitant]
  5. SORTIS [Concomitant]

REACTIONS (1)
  - BLOOD PRESSURE INCREASED [None]
